FAERS Safety Report 7875479-3 (Version None)
Quarter: 2011Q4

REPORT INFORMATION
  Report Type: 
  Country: None (occurrence: None)
  Receive Date: 20111031
  Receipt Date: 20111024
  Transmission Date: 20120403
  Serious: Yes (Hospitalization, Other)
  Sender: FDA-Public Use
  Company Number: PHHY2011US65501

PATIENT
  Sex: Male
  Weight: 154 kg

DRUGS (8)
  1. OXYCONTIN [Concomitant]
     Dosage: UNK UKN, UNK
  2. IMIPRAMINE [Concomitant]
     Dosage: UNK UKN, UNK
  3. OXYCODONE HCL [Concomitant]
     Dosage: UNK UKN, UNK
  4. EXTAVIA [Suspect]
     Indication: MULTIPLE SCLEROSIS
     Dosage: 250 UG, QOD
     Route: 058
     Dates: start: 20110706
  5. BACLOFEN [Concomitant]
     Dosage: UNK UKN, UNK
  6. VANCOMYCIN [Concomitant]
     Dosage: UNK UKN, UNK
  7. MORPHINE [Concomitant]
     Dosage: UNK UKN, UNK
  8. PROTONIX [Concomitant]
     Dosage: UNK UKN, UNK

REACTIONS (5)
  - MULTIPLE SCLEROSIS [None]
  - URINARY INCONTINENCE [None]
  - GASTROINTESTINAL DISORDER [None]
  - ABDOMINAL PAIN [None]
  - CLOSTRIDIAL INFECTION [None]
